FAERS Safety Report 7137853-2 (Version None)
Quarter: 2010Q4

REPORT INFORMATION
  Report Type: 
  Country: None (occurrence: None)
  Receive Date: 20101206
  Receipt Date: 20101124
  Transmission Date: 20110411
  Serious: Yes (Other)
  Sender: FDA-Public Use
  Company Number: US-PURDUE-USA-2010-0055136

PATIENT
  Sex: Male

DRUGS (4)
  1. OXYCONTIN [Suspect]
     Indication: CANCER PAIN
     Dosage: 240 MG, DAILY
  2. OXYCODONE HCL [Concomitant]
     Indication: BREAKTHROUGH PAIN
  3. FEMALE HORMONE SHOT [Concomitant]
     Indication: PRODUCT USED FOR UNKNOWN INDICATION
  4. PILL FOR PROSTATE [Concomitant]
     Indication: PROSTATE CANCER METASTATIC

REACTIONS (8)
  - DELIRIUM [None]
  - DRUG INEFFECTIVE [None]
  - HEADACHE [None]
  - MEDICATION RESIDUE [None]
  - NAUSEA [None]
  - PROSTATE CANCER METASTATIC [None]
  - VOMITING [None]
  - WEIGHT DECREASED [None]
